FAERS Safety Report 24567270 (Version 4)
Quarter: 2025Q3

REPORT INFORMATION
  Report Type: Report from Study
  Country: CN (occurrence: CN)
  Receive Date: 20241030
  Receipt Date: 20250926
  Transmission Date: 20251020
  Serious: Yes (Hospitalization)
  Sender: ALEXION PHARMACEUTICALS
  Company Number: CN-AstraZeneca-2024A201175

PATIENT
  Age: 4 Year
  Sex: Female

DRUGS (11)
  1. SELUMETINIB [Suspect]
     Active Substance: SELUMETINIB
     Indication: Neurofibromatosis
     Dosage: 10 MILLIGRAM, QD
     Dates: start: 20240706, end: 20240830
  2. SELUMETINIB [Suspect]
     Active Substance: SELUMETINIB
     Dosage: 20 MILLIGRAM, QD
     Dates: start: 20240706, end: 20240831
  3. SELUMETINIB [Suspect]
     Active Substance: SELUMETINIB
     Dosage: UNK MILLIGRAM, QD
     Dates: start: 20240831, end: 20240831
  4. SELUMETINIB [Suspect]
     Active Substance: SELUMETINIB
     Dosage: UNK MILLIGRAM, BID
     Dates: start: 20240901, end: 20240918
  5. SELUMETINIB [Suspect]
     Active Substance: SELUMETINIB
     Dosage: 10 MILLIGRAM, BID
     Dates: start: 20240919
  6. SELUMETINIB [Suspect]
     Active Substance: SELUMETINIB
     Dosage: 10 MILLIGRAM, QD
     Dates: start: 20240920, end: 20240920
  7. SELUMETINIB [Suspect]
     Active Substance: SELUMETINIB
     Dosage: 10 MILLIGRAM, BID
     Dates: start: 20240921
  8. FRUCTOSE [Concomitant]
     Active Substance: FRUCTOSE
     Indication: Prophylaxis
     Dosage: UNK SODIUM DIPHOSPHATE MILLILITER, BID
     Route: 065
     Dates: start: 20240830, end: 20240919
  9. FRUCTOSE [Concomitant]
     Active Substance: FRUCTOSE
     Dosage: UNK MILLILITER, BID
     Route: 065
     Dates: start: 20240926
  10. VITAMIN C [Concomitant]
     Active Substance: ASCORBIC ACID
     Indication: Prophylaxis
     Dosage: UNK GRAM, TID
     Route: 065
     Dates: start: 20240830, end: 20240919
  11. VITAMIN C [Concomitant]
     Active Substance: ASCORBIC ACID
     Dosage: UNK GRAM, TID
     Route: 065
     Dates: start: 20240926

REACTIONS (4)
  - Blood creatine phosphokinase increased [Recovered/Resolved]
  - Alpha hydroxybutyrate dehydrogenase increased [Recovered/Resolved]
  - Blood lactate dehydrogenase increased [Recovered/Resolved]
  - Aspartate aminotransferase increased [Recovered/Resolved]

NARRATIVE: CASE EVENT DATE: 20240830
